FAERS Safety Report 4689698-0 (Version None)
Quarter: 2005Q2

REPORT INFORMATION
  Report Type: 
  Country: None (occurrence: None)
  Receive Date: 20050613
  Receipt Date: 20050613
  Transmission Date: 20051028
  Serious: Yes (Hospitalization)
  Sender: FDA-Public Use
  Company Number: None

PATIENT
  Sex: Male
  Weight: 63.05 kg

DRUGS (7)
  1. GEMCITABINE 100 MG /ML LILLY AND B. MYERS [Suspect]
     Indication: PANCREATIC CARCINOMA
     Dosage: 1000/20 MG DAY 1 AND 15 IV
     Route: 042
     Dates: start: 20050414, end: 20050526
  2. CISPLATIN [Suspect]
  3. BEVACIZUMAB 25 MG/ML GENENTECH [Suspect]
     Indication: PANCREATIC CARCINOMA
     Dosage: 10 MG/KG DAY 1 AND 15 IV
     Route: 042
     Dates: start: 20050414, end: 20050526
  4. MORPHINE SULFATE [Concomitant]
  5. KYTRIL [Concomitant]
  6. COMPAZINE [Concomitant]
  7. LORAZEPAM [Concomitant]

REACTIONS (5)
  - CONDITION AGGRAVATED [None]
  - DUODENAL OBSTRUCTION [None]
  - GASTRIC OUTLET OBSTRUCTION [None]
  - NAUSEA [None]
  - VOMITING [None]
